FAERS Safety Report 7464063-1 (Version None)
Quarter: 2011Q2

REPORT INFORMATION
  Report Type: 
  Country: None (occurrence: None)
  Receive Date: 20110506
  Receipt Date: 20110426
  Transmission Date: 20111010
  Serious: Yes (Other)
  Sender: FDA-Public Use
  Company Number: PHHY2011JP36106

PATIENT

DRUGS (4)
  1. PAXIL [Suspect]
     Dosage: UNK
     Route: 048
     Dates: start: 20110318
  2. PREDONINE [Concomitant]
     Dosage: 27.5 MG
     Route: 048
  3. NEORAL [Suspect]
     Dosage: 50 MG, UNK
     Route: 048
     Dates: end: 20110425
  4. NEORAL [Suspect]
     Indication: GLOMERULONEPHRITIS MEMBRANOUS
     Dosage: 100 MG, UNK
     Route: 048
     Dates: start: 20110122

REACTIONS (2)
  - PLATELET COUNT DECREASED [None]
  - BONE MARROW FAILURE [None]
